FAERS Safety Report 5693815-3 (Version None)
Quarter: 2008Q2

REPORT INFORMATION
  Report Type: 
  Country: None (occurrence: None)
  Receive Date: 20080403
  Receipt Date: 20080331
  Transmission Date: 20081010
  Serious: Yes (Hospitalization)
  Sender: FDA-Public Use
  Company Number: KR-BRISTOL-MYERS SQUIBB COMPANY-13646989

PATIENT
  Age: 63 Year
  Sex: Female

DRUGS (9)
  1. ABATACEPT [Suspect]
     Indication: RHEUMATOID ARTHRITIS
     Route: 042
     Dates: start: 20060801, end: 20061218
  2. METHOTREXATE TABS [Suspect]
     Route: 048
     Dates: start: 20060801
  3. FOLIC ACID [Concomitant]
     Dates: start: 20060801
  4. ACECLOFENAC [Concomitant]
     Dates: start: 20060704
  5. REBAMIPIDE [Concomitant]
     Dates: start: 20060620
  6. ACETAMINOPHEN [Concomitant]
     Dates: start: 20070109, end: 20070111
  7. AUGMENTIN '125' [Concomitant]
     Dates: start: 20070109, end: 20070111
  8. BENPROPERINE [Concomitant]
     Dates: start: 20070109, end: 20070111
  9. CIMETIDINE [Concomitant]
     Dates: start: 20070109, end: 20070111

REACTIONS (2)
  - BRONCHITIS [None]
  - GASTROENTERITIS [None]
